FAERS Safety Report 7688573-7 (Version None)
Quarter: 2011Q3

REPORT INFORMATION
  Report Type: 
  Country: None (occurrence: None)
  Receive Date: 20110817
  Receipt Date: 20110805
  Transmission Date: 20111222
  Serious: Yes (Death)
  Sender: FDA-Public Use
  Company Number: NL-SANOFI-AVENTIS-2011SA048190

PATIENT
  Age: 79 Year
  Sex: Female
  Weight: 70 kg

DRUGS (14)
  1. METFORMIN HCL [Concomitant]
  2. FORMOTEROL FUMARATE [Concomitant]
  3. CLOPIDOGREL [Concomitant]
  4. ACENOCOUMAROL [Concomitant]
  5. DRONEDARONE HCL [Suspect]
     Indication: ATRIAL FIBRILLATION
     Route: 048
     Dates: start: 20110630, end: 20110704
  6. XANAX [Concomitant]
  7. CODEINE SULFATE [Concomitant]
  8. DIGOXIN [Concomitant]
  9. ZOPLICONE [Concomitant]
  10. SERETIDE [Concomitant]
  11. VERAPAMIL [Concomitant]
  12. FUROSEMIDE [Concomitant]
  13. IRBESARTAN [Concomitant]
  14. LEXAPRO [Concomitant]

REACTIONS (1)
  - CARDIAC DEATH [None]
